FAERS Safety Report 6641174-1 (Version None)
Quarter: 2010Q1

REPORT INFORMATION
  Report Type: 
  Country: None (occurrence: None)
  Receive Date: 20100318
  Receipt Date: 20100304
  Transmission Date: 20100710
  Serious: Yes (Hospitalization)
  Sender: FDA-Public Use
  Company Number: PHHY2010DE02602

PATIENT
  Age: 56 Year
  Sex: Female
  Weight: 71 kg

DRUGS (5)
  1. GLEEVEC [Suspect]
     Indication: GASTROINTESTINAL STROMAL TUMOUR
     Dosage: 400MG, UNK
     Route: 048
     Dates: start: 20080901, end: 20081101
  2. GLEEVEC [Suspect]
     Dosage: 400MG, UNK
     Route: 048
     Dates: start: 20090201, end: 20090301
  3. TREVILOR - SLOW RELEASE [Suspect]
     Indication: DEPRESSION
     Dosage: 150 MG, BID
     Route: 048
     Dates: start: 20080801, end: 20090201
  4. TREVILOR - SLOW RELEASE [Suspect]
     Dosage: 150 MG, BID
     Route: 048
     Dates: start: 20090412, end: 20090428
  5. TIMOHEXAL [Concomitant]
     Indication: GLAUCOMA
     Dosage: 2.42 MG, BID
     Route: 057
     Dates: start: 20050101

REACTIONS (5)
  - CHOLANGITIS [None]
  - HEPATIC CIRRHOSIS [None]
  - HEPATIC STEATOSIS [None]
  - LIVER DISORDER [None]
  - PORTAL HYPERTENSIVE GASTROPATHY [None]
